FAERS Safety Report 18550281 (Version 1)
Quarter: 2020Q4

REPORT INFORMATION
  Report Type: Spontaneous
  Country: SE (occurrence: SE)
  Receive Date: 20201126
  Receipt Date: 20201126
  Transmission Date: 20210114
  Serious: Yes (Hospitalization, Other)
  Sender: FDA-Public Use
  Company Number: SE-009507513-2011SWE008836

PATIENT
  Age: 71 Year
  Sex: Female

DRUGS (1)
  1. KEYTRUDA [Suspect]
     Active Substance: PEMBROLIZUMAB
     Indication: MELANOMA RECURRENT
     Dosage: 400 MG, Q6W
     Dates: start: 20200812, end: 20200812

REACTIONS (19)
  - Immune-mediated myositis [Unknown]
  - Eyelid ptosis [Unknown]
  - Vocal cord paralysis [Not Recovered/Not Resolved]
  - Aspartate aminotransferase increased [Unknown]
  - Device issue [Unknown]
  - Myasthenic syndrome [Unknown]
  - Acute myocardial infarction [Unknown]
  - Dysphagia [Unknown]
  - Muscle spasms [Unknown]
  - Alanine aminotransferase increased [Unknown]
  - Blood creatinine increased [Unknown]
  - Diaphragmatic paralysis [Not Recovered/Not Resolved]
  - Muscle contractions involuntary [Unknown]
  - Blood lactate dehydrogenase increased [Unknown]
  - Immune-mediated myocarditis [Unknown]
  - Central nervous system inflammation [Unknown]
  - Cardiac arrest [Recovered/Resolved]
  - Ear infection [Unknown]
  - Blood potassium increased [Unknown]

NARRATIVE: CASE EVENT DATE: 2020
